FAERS Safety Report 9617252 (Version 2)
Quarter: 2013Q4

REPORT INFORMATION
  Report Type: Report from Study
  Country: FR (occurrence: FR)
  Receive Date: 20131011
  Receipt Date: 20131029
  Transmission Date: 20140711
  Serious: Yes (Hospitalization)
  Sender: FDA-Public Use
  Company Number: FR-CELGENEUS-056-21880-13094448

PATIENT
  Age: 64 Year
  Sex: Male

DRUGS (6)
  1. REVLIMID [Suspect]
     Indication: PLASMA CELL MYELOMA
     Route: 048
     Dates: start: 20120611
  2. REVLIMID [Suspect]
     Route: 048
     Dates: end: 20130924
  3. REVLIMID [Suspect]
     Route: 048
     Dates: start: 20131015
  4. BORTEZOMIB [Suspect]
     Indication: PLASMA CELL MYELOMA
     Route: 065
     Dates: start: 20120611
  5. DEXAMETHASONE [Suspect]
     Indication: PLASMA CELL MYELOMA
     Route: 065
     Dates: start: 20120611
  6. ASPERGIC [Concomitant]
     Indication: PROPHYLAXIS
     Route: 048
     Dates: start: 20130219

REACTIONS (1)
  - Acute febrile neutrophilic dermatosis [Recovered/Resolved]
